FAERS Safety Report 8546637-X (Version None)
Quarter: 2012Q3

REPORT INFORMATION
  Report Type: 
  Country: None (occurrence: None)
  Receive Date: 20120727
  Receipt Date: 20120723
  Transmission Date: 20120928
  Serious: Yes (Hospitalization, Other)
  Sender: FDA-Public Use
  Company Number: US-009507513-1201USA02277

PATIENT

DRUGS (3)
  1. ACTONEL [Suspect]
     Indication: OSTEOPOROSIS
     Dosage: UNK
     Dates: start: 20060813, end: 20060913
  2. FOSAMAX [Suspect]
     Indication: OSTEOPOROSIS
     Dosage: 10 MG, QD
     Route: 048
     Dates: start: 19990225
  3. FOSAMAX [Suspect]
     Dosage: 70 MG, QW
     Route: 048
     Dates: start: 20000314, end: 20060627

REACTIONS (75)
  - HERNIA [None]
  - ARTHROPATHY [None]
  - BONE DISORDER [None]
  - BONE LOSS [None]
  - MASS [None]
  - CEREBRAL ISCHAEMIA [None]
  - ARTHRALGIA [None]
  - ARTERIOSCLEROSIS [None]
  - DIVERTICULITIS [None]
  - HELICOBACTER INFECTION [None]
  - SPONDYLOLISTHESIS [None]
  - ILIUM FRACTURE [None]
  - RADICULOPATHY [None]
  - ATELECTASIS [None]
  - HIATUS HERNIA [None]
  - OSTEOARTHRITIS [None]
  - SUBDURAL HAEMATOMA [None]
  - CONTUSION [None]
  - CONJUNCTIVAL HAEMORRHAGE [None]
  - GALLBLADDER DISORDER [None]
  - FALL [None]
  - CEREBRAL ATROPHY [None]
  - SKIN LESION [None]
  - INFECTIOUS PERITONITIS [None]
  - RHINITIS [None]
  - LYMPHOCYTIC LEUKAEMIA [None]
  - MUSCULOSKELETAL PAIN [None]
  - SMALL INTESTINAL OBSTRUCTION [None]
  - DEHYDRATION [None]
  - MASTOIDITIS [None]
  - LOW TURNOVER OSTEOPATHY [None]
  - SPINAL COMPRESSION FRACTURE [None]
  - SPINAL COLUMN STENOSIS [None]
  - SKELETAL INJURY [None]
  - DIVERTICULUM [None]
  - SPINAL DECOMPRESSION [None]
  - LOWER RESPIRATORY TRACT INFECTION [None]
  - GASTRITIS [None]
  - TRANSIENT ISCHAEMIC ATTACK [None]
  - HEADACHE [None]
  - SINUS CONGESTION [None]
  - HAEMORRHAGIC ANAEMIA [None]
  - TREMOR [None]
  - FEMUR FRACTURE [None]
  - ANXIETY [None]
  - VERTEBRAL FORAMINAL STENOSIS [None]
  - ADENOIDAL DISORDER [None]
  - COMPRESSION FRACTURE [None]
  - HAEMORRHAGE INTRACRANIAL [None]
  - SINUSITIS [None]
  - HYPOTHYROIDISM [None]
  - HYPERTENSION [None]
  - GASTROINTESTINAL DISORDER [None]
  - URINARY INCONTINENCE [None]
  - OTITIS MEDIA [None]
  - OESOPHAGEAL STENOSIS [None]
  - MASTOID DISORDER [None]
  - COUGH [None]
  - INCREASED TENDENCY TO BRUISE [None]
  - DEPRESSION [None]
  - MOBILITY DECREASED [None]
  - GASTROOESOPHAGEAL REFLUX DISEASE [None]
  - UTERINE DISORDER [None]
  - UPPER LIMB FRACTURE [None]
  - TONSILLAR DISORDER [None]
  - DYSPHAGIA [None]
  - LACUNAR INFARCTION [None]
  - FRACTURED ISCHIUM [None]
  - DEAFNESS NEUROSENSORY [None]
  - TYMPANIC MEMBRANE DISORDER [None]
  - CATARACT [None]
  - TINNITUS [None]
  - HYPOXIA [None]
  - DEMENTIA [None]
  - MUSCULOSKELETAL CHEST PAIN [None]
